FAERS Safety Report 24036612 (Version 1)
Quarter: 2024Q3

REPORT INFORMATION
  Report Type: Spontaneous
  Country: ES (occurrence: A1)
  Receive Date: 20240701
  Receipt Date: 20240701
  Transmission Date: 20241017
  Serious: Yes (Life-Threatening, Other)
  Sender: BRECKENRIDGE
  Company Number: A1-Breckenridge Pharmaceutical, Inc.-2158749

PATIENT

DRUGS (6)
  1. OMEPRAZOLE [Suspect]
     Active Substance: OMEPRAZOLE
  2. LENALIDOMIDE [Suspect]
     Active Substance: LENALIDOMIDE
  3. FILGRASTIM [Suspect]
     Active Substance: FILGRASTIM
  4. FLUCONAZOLE [Suspect]
     Active Substance: FLUCONAZOLE
  5. BACTRIM [Suspect]
     Active Substance: SULFAMETHOXAZOLE\TRIMETHOPRIM
  6. DEXAMETHASONE [Suspect]
     Active Substance: DEXAMETHASONE

REACTIONS (2)
  - Fall [Unknown]
  - Cerebral haemorrhage [Unknown]
